FAERS Safety Report 24176945 (Version 1)
Quarter: 2024Q3

REPORT INFORMATION
  Report Type: Spontaneous
  Country: CR (occurrence: CR)
  Receive Date: 20240806
  Receipt Date: 20240806
  Transmission Date: 20241016
  Serious: Yes (Death, Other)
  Sender: JOHNSON AND JOHNSON
  Company Number: CR-JNJFOC-20240136738

PATIENT
  Age: 59 Year
  Sex: Female

DRUGS (1)
  1. TRABECTEDIN [Suspect]
     Active Substance: TRABECTEDIN
     Indication: Leiomyosarcoma
     Route: 065

REACTIONS (9)
  - Drug ineffective [Fatal]
  - Metastases to lung [Fatal]
  - Intrauterine infection [Unknown]
  - Pulmonary thrombosis [Unknown]
  - Hair growth abnormal [Unknown]
  - Cough [Unknown]
  - Anaemia [Unknown]
  - Asthenia [Unknown]
  - Decreased appetite [Unknown]

NARRATIVE: CASE EVENT DATE: 20231201
